FAERS Safety Report 15554085 (Version 1)
Quarter: 2018Q4

REPORT INFORMATION
  Report Type: Report from Study
  Country: US (occurrence: US)
  Receive Date: 20181026
  Receipt Date: 20181026
  Transmission Date: 20190205
  Serious: Yes (Hospitalization, Other)
  Sender: FDA-Public Use
  Company Number: US-ROCHE-2204470

PATIENT

DRUGS (1)
  1. RITUXIMAB. [Suspect]
     Active Substance: RITUXIMAB
     Indication: MULTIPLE SCLEROSIS
     Route: 065

REACTIONS (17)
  - Pyelonephritis [Unknown]
  - Bronchitis [Unknown]
  - Ear infection [Unknown]
  - Lymphopenia [Unknown]
  - Blood immunoglobulin G decreased [Unknown]
  - Off label use [Unknown]
  - Influenza [Unknown]
  - Colon cancer [Unknown]
  - Pneumonia [Unknown]
  - Mastoiditis [Unknown]
  - Breast cancer [Unknown]
  - Upper respiratory tract infection [Unknown]
  - Blood immunoglobulin M decreased [Unknown]
  - Neutropenia [Unknown]
  - Intentional product use issue [Unknown]
  - Urinary tract infection [Unknown]
  - Infusion related reaction [Unknown]
